FAERS Safety Report 6986789-6 (Version None)
Quarter: 2010Q3

REPORT INFORMATION
  Report Type: 
  Country: None (occurrence: None)
  Receive Date: 20100915
  Receipt Date: 20090806
  Transmission Date: 20110219
  Serious: No
  Sender: FDA-Public Use
  Company Number: US-WYE-H10523409

PATIENT
  Sex: Male
  Weight: 123.94 kg

DRUGS (6)
  1. PRISTIQ [Suspect]
     Indication: DEPRESSION
     Route: 048
     Dates: start: 20090501
  2. FINASTERIDE [Concomitant]
  3. ATENOLOL [Concomitant]
  4. ROXICET [Concomitant]
  5. ZOCOR [Concomitant]
  6. PREVACID [Concomitant]

REACTIONS (2)
  - FLUID RETENTION [None]
  - SWELLING [None]
